FAERS Safety Report 15531130 (Version 3)
Quarter: 2018Q4

REPORT INFORMATION
  Report Type: Spontaneous
  Country: JP (occurrence: JP)
  Receive Date: 20181019
  Receipt Date: 20181212
  Transmission Date: 20190205
  Serious: Yes (Death, Hospitalization, Other)
  Sender: FDA-Public Use
  Company Number: JP-009507513-1810JPN001436J

PATIENT
  Age: 66 Year
  Sex: Male

DRUGS (1)
  1. KEYTRUDA [Suspect]
     Active Substance: PEMBROLIZUMAB
     Indication: NON-SMALL CELL LUNG CANCER
     Dosage: UNK
     Route: 041
     Dates: start: 20180125

REACTIONS (7)
  - Death [Fatal]
  - Pneumocystis jirovecii pneumonia [Unknown]
  - Dyspnoea [Unknown]
  - Pyrexia [Unknown]
  - Rash [Unknown]
  - Interstitial lung disease [Unknown]
  - Liver disorder [Unknown]

NARRATIVE: CASE EVENT DATE: 20180128
